FAERS Safety Report 6044095-0 (Version None)
Quarter: 2009Q1

REPORT INFORMATION
  Report Type: 
  Country: None (occurrence: None)
  Receive Date: 20090120
  Receipt Date: 20090116
  Transmission Date: 20090719
  Serious: Yes (Hospitalization)
  Sender: FDA-Public Use
  Company Number: B0554552A

PATIENT
  Age: 83 Year
  Sex: Male

DRUGS (5)
  1. RANITIDINE HCL [Suspect]
     Indication: PREMEDICATION
     Route: 042
     Dates: start: 20090107, end: 20090107
  2. PACLITAXEL [Suspect]
     Dosage: 200MG SINGLE DOSE
     Route: 042
     Dates: start: 20090107, end: 20090107
  3. ONDANSETRON [Suspect]
     Indication: PREMEDICATION
     Dosage: 8MG SINGLE DOSE
     Route: 042
     Dates: start: 20090107, end: 20090107
  4. SOLU-MEDROL [Suspect]
     Indication: PREMEDICATION
     Dosage: 80MG PER DAY
     Route: 042
     Dates: start: 20090107, end: 20090107
  5. POLARAMINE [Suspect]
     Indication: PREMEDICATION
     Route: 042
     Dates: start: 20090107, end: 20090107

REACTIONS (2)
  - HYPERTENSION [None]
  - MALAISE [None]
